FAERS Safety Report 16051788 (Version 1)
Quarter: 2019Q1

REPORT INFORMATION
  Report Type: Spontaneous
  Country: CN (occurrence: CN)
  Receive Date: 20190308
  Receipt Date: 20190308
  Transmission Date: 20190418
  Serious: Yes (Death, Other)
  Sender: FDA-Public Use
  Company Number: CN-BAYER-2019-047440

PATIENT
  Age: 46 Year
  Sex: Male

DRUGS (1)
  1. MAGNEVIST [Suspect]
     Active Substance: GADOPENTETATE DIMEGLUMINE
     Indication: NUCLEAR MAGNETIC RESONANCE IMAGING
     Dosage: UNK, ONCE
     Dates: start: 20190305, end: 20190305

REACTIONS (4)
  - Shock [None]
  - Vomiting [None]
  - Cardiac failure [Fatal]
  - Contrast media allergy [None]

NARRATIVE: CASE EVENT DATE: 20190305
